FAERS Safety Report 8176558-6 (Version None)
Quarter: 2012Q1

REPORT INFORMATION
  Report Type: 
  Country: None (occurrence: None)
  Receive Date: 20120120
  Receipt Date: 20111201
  Transmission Date: 20120608
  Serious: Yes (Hospitalization, Other)
  Sender: FDA-Public Use
  Company Number: 2011SP056631

PATIENT
  Age: 33 Year
  Sex: Female

DRUGS (1)
  1. DULERA ORAL INHALATION [Suspect]
     Indication: ASTHMA
     Dosage: INH
     Route: 055
     Dates: start: 20111111, end: 20111111

REACTIONS (1)
  - ANAPHYLACTIC REACTION [None]
